FAERS Safety Report 10250969 (Version 2)
Quarter: 2014Q4

REPORT INFORMATION
  Report Type: Report from Study
  Country: DE (occurrence: DE)
  Receive Date: 20140620
  Receipt Date: 20141007
  Transmission Date: 20150528
  Serious: Yes (Other)
  Sender: FDA-Public Use
  Company Number: DE-TEVA-489083GER

PATIENT
  Age: 6 Decade
  Sex: Male
  Weight: 80 kg

DRUGS (5)
  1. VINCRISTINE [Suspect]
     Active Substance: VINCRISTINE
     Indication: MANTLE CELL LYMPHOMA
     Dosage: LAST DOSE PRIOR TO EVENT: 31-MAR-2014
     Route: 042
     Dates: start: 20140331
  2. LONQUEX [Suspect]
     Active Substance: LIPEGFILGRASTIM
     Indication: NEUTROPENIA
     Dosage: LAST DOSE PRIOR TO EVENT 31-MAR-2014
     Dates: start: 20140331
  3. CYCLOPHOSPHAMID [Suspect]
     Active Substance: CYCLOPHOSPHAMIDE
     Indication: MANTLE CELL LYMPHOMA
     Dosage: LAST DOSE PRIOR TO EVENT: 31-MAR-2014
     Route: 042
     Dates: start: 20140331
  4. MABTHERA [Suspect]
     Active Substance: RITUXIMAB
     Indication: MANTLE CELL LYMPHOMA
     Dosage: LAST DOSE PRIOR TO EVENT: 31-MAR-2014
     Route: 042
     Dates: start: 20140331
  5. ADRIAMYCIN [Suspect]
     Active Substance: DOXORUBICIN HYDROCHLORIDE
     Indication: MANTLE CELL LYMPHOMA
     Dosage: LAST DOSE PRIOR TO EVENT: 31-MAR-2014
     Route: 042
     Dates: start: 20140331

REACTIONS (1)
  - Anaemia [Recovered/Resolved]

NARRATIVE: CASE EVENT DATE: 20140422
